FAERS Safety Report 12607376 (Version 1)
Quarter: 2016Q3

REPORT INFORMATION
  Report Type: Spontaneous
  Country: FR (occurrence: FR)
  Receive Date: 20160729
  Receipt Date: 20160729
  Transmission Date: 20161109
  Serious: Yes (Other)
  Sender: FDA-Public Use
  Company Number: FR-SA-2016SA136207

PATIENT
  Age: 65 Year
  Sex: Male

DRUGS (15)
  1. LOVENOX [Suspect]
     Active Substance: ENOXAPARIN SODIUM
     Indication: CHEST PAIN
     Route: 058
     Dates: start: 20160630, end: 20160630
  2. BISOCE [Suspect]
     Active Substance: BISOPROLOL
     Dosage: FORM-FILM COATED DIVISIBLE TABLET; 2.5MG
     Route: 048
     Dates: start: 20160701, end: 20160705
  3. RAMIPRIL. [Concomitant]
     Active Substance: RAMIPRIL
     Indication: MYOCARDIAL INFARCTION
     Route: 048
     Dates: start: 20160701, end: 20160706
  4. PARACETAMOL [Concomitant]
     Active Substance: ACETAMINOPHEN
  5. FUROSEMIDE. [Suspect]
     Active Substance: FUROSEMIDE
     Indication: MYOCARDIAL INFARCTION
     Route: 048
     Dates: start: 20160701, end: 20160706
  6. BRILIQUE [Suspect]
     Active Substance: TICAGRELOR
     Indication: MYOCARDIAL INFARCTION
     Route: 048
     Dates: start: 20160701
  7. MORPHINE [Concomitant]
     Active Substance: MORPHINE
  8. ASPEGIC [Concomitant]
     Active Substance: ASPIRIN DL-LYSINE
     Indication: CHEST PAIN
     Dosage: POWDER FOR ORAL SOLUTION IN DOSE SACHET
     Route: 048
     Dates: start: 20160630, end: 20160630
  9. KARDEGIC [Concomitant]
     Active Substance: ASPIRIN LYSINE
     Indication: MYOCARDIAL INFARCTION
     Dosage: POWDER FOR ORAL SOLUTION IN DOSE SACHET
     Route: 048
     Dates: start: 20160701
  10. OMNIPAQUE [Suspect]
     Active Substance: IOHEXOL
     Indication: SCAN WITH CONTRAST
     Route: 042
     Dates: start: 20160701, end: 20160701
  11. TAHOR [Concomitant]
     Active Substance: ATORVASTATIN CALCIUM
     Indication: MYOCARDIAL INFARCTION
     Dosage: 80MG
     Route: 048
     Dates: start: 20160701
  12. DIAMOX SEQUELS [Suspect]
     Active Substance: ACETAZOLAMIDE
     Indication: MYOCARDIAL INFARCTION
     Route: 048
     Dates: start: 20160701, end: 20160705
  13. PLAVIX [Concomitant]
     Active Substance: CLOPIDOGREL BISULFATE
     Indication: MYOCARDIAL INFARCTION
     Route: 048
     Dates: start: 20160630, end: 20160630
  14. PRIMPERAN [Concomitant]
     Active Substance: METOCLOPRAMIDE HYDROCHLORIDE
  15. AGRASTAT [Suspect]
     Active Substance: TIROFIBAN HYDROCHLORIDE
     Indication: CORONARY ANGIOPLASTY
     Route: 042
     Dates: start: 20160702, end: 20160702

REACTIONS (3)
  - Malaise [Recovered/Resolved]
  - Chills [Recovered/Resolved]
  - Rash maculo-papular [Recovered/Resolved]

NARRATIVE: CASE EVENT DATE: 20160704
